FAERS Safety Report 7687210-5 (Version None)
Quarter: 2011Q3

REPORT INFORMATION
  Report Type: 
  Country: None (occurrence: None)
  Receive Date: 20110816
  Receipt Date: 20110815
  Transmission Date: 20111222
  Serious: Yes (Hospitalization, Other)
  Sender: FDA-Public Use
  Company Number: JP-ABBOTT-11P-087-0844026-00

PATIENT
  Sex: Female

DRUGS (5)
  1. LOXOPROFEN SODIUM HYDRATE [Concomitant]
     Indication: PAIN
     Dosage: 60MG DAILY
     Route: 048
     Dates: start: 20110620, end: 20110712
  2. HUMIRA [Suspect]
     Route: 058
     Dates: end: 20110715
  3. POLAPREZINC [Concomitant]
     Indication: PAIN
     Dosage: 150MG DAILY
     Route: 048
     Dates: start: 20110420, end: 20110616
  4. HUMIRA [Suspect]
     Indication: PSORIATIC ARTHROPATHY
     Route: 058
     Dates: start: 20110603, end: 20110603
  5. INDOMETACIN FARNESIL [Concomitant]
     Indication: PAIN
     Dosage: 400MG DAILY
     Route: 048
     Dates: start: 20110420, end: 20110616

REACTIONS (2)
  - ARRHYTHMIA [None]
  - TENDON RUPTURE [None]
